FAERS Safety Report 5287930-6 (Version None)
Quarter: 2007Q2

REPORT INFORMATION
  Report Type: 
  Country: None (occurrence: None)
  Receive Date: 20070402
  Receipt Date: 20070402
  Transmission Date: 20071010
  Serious: Yes (Hospitalization)
  Sender: FDA-Public Use
  Company Number: None

PATIENT
  Age: 47 Year
  Sex: Male

DRUGS (1)
  1. QUETIAPINE FUMARATE [Suspect]
     Indication: PSYCHOTIC DISORDER
     Dosage: 200MG QHS PRN PO
     Route: 048
     Dates: start: 20070121, end: 20070122

REACTIONS (2)
  - PAIN IN EXTREMITY [None]
  - RESTLESS LEGS SYNDROME [None]
